FAERS Safety Report 13331688 (Version 1)
Quarter: 2017Q1

REPORT INFORMATION
  Report Type: Spontaneous
  Country: US (occurrence: US)
  Receive Date: 20170314
  Receipt Date: 20170314
  Transmission Date: 20170428
  Serious: No
  Sender: FDA-Public Use
  Company Number: US-JNJFOC-20170107846

PATIENT
  Sex: Male

DRUGS (2)
  1. MUCINEX [Concomitant]
     Active Substance: GUAIFENESIN
     Indication: NASOPHARYNGITIS
     Dosage: TOOK 2 TABLEST EVERY 5 TO 6 HOURS.
     Route: 065
     Dates: start: 20170108
  2. TYLENOL REGULAR STRENGTH [Suspect]
     Active Substance: ACETAMINOPHEN
     Indication: NASOPHARYNGITIS
     Dosage: 1 DOSE EVERY 5-6 HOUR.
     Route: 048
     Dates: start: 20170108

REACTIONS (1)
  - Drug administration error [Unknown]

NARRATIVE: CASE EVENT DATE: 20170108
